FAERS Safety Report 5854053-4 (Version None)
Quarter: 2008Q3

REPORT INFORMATION
  Report Type: 
  Country: None (occurrence: None)
  Receive Date: 20080822
  Receipt Date: 20080812
  Transmission Date: 20090109
  Serious: Yes (Disabling)
  Sender: FDA-Public Use
  Company Number: US-ROCHE-564452

PATIENT
  Sex: Female
  Weight: 64.4 kg

DRUGS (3)
  1. BONIVA [Suspect]
     Indication: OSTEOPENIA
     Dosage: THE PATIENT TOOK ONE DOSE ONLY
     Route: 048
     Dates: start: 20080510, end: 20080510
  2. 1 CONCOMITANT DRUG [Concomitant]
     Dosage: DRUG REPORTED AS: HERBAL PRODUCT
  3. 1 CONCOMITANT DRUG [Concomitant]
     Dosage: DOSE: 23 VITAMIN AND MINERAL PILLS IN THE MORNING AND 19 OF THE SAME IN THE EVENING, FORM: PILLS

REACTIONS (19)
  - ABASIA [None]
  - ARTHRALGIA [None]
  - BODY TEMPERATURE DECREASED [None]
  - BONE PAIN [None]
  - CRYING [None]
  - DYSPNOEA [None]
  - EMOTIONAL DISORDER [None]
  - FALL [None]
  - FEELING ABNORMAL [None]
  - GLOSSODYNIA [None]
  - HEADACHE [None]
  - MUSCULOSKELETAL STIFFNESS [None]
  - MYALGIA [None]
  - PAIN IN EXTREMITY [None]
  - STOMACH DISCOMFORT [None]
  - THROAT TIGHTNESS [None]
  - TOOTHACHE [None]
  - TREMOR [None]
  - VISION BLURRED [None]
